FAERS Safety Report 11038773 (Version 1)
Quarter: 2015Q2

REPORT INFORMATION
  Report Type: Spontaneous
  Country: US (occurrence: US)
  Receive Date: 20150416
  Receipt Date: 20150416
  Transmission Date: 20150821
  Serious: Yes (Disabling)
  Sender: FDA-Public Use
  Company Number: US-PFIZER INC-2015128790

PATIENT
  Age: 62 Year
  Sex: Female

DRUGS (6)
  1. ELAVILE [Concomitant]
     Dosage: 50 MG, 1X/DAY (AT BED TIME)
  2. PRIMIDONE. [Concomitant]
     Active Substance: PRIMIDONE
     Dosage: 50 MG, 1X/DAY (AT BED TIME)
  3. PROLIXIN [Concomitant]
     Active Substance: FLUPHENAZINE HYDROCHLORIDE
     Dosage: 1 MG, (ONE IN MORNING, 2 AT BED TIME)
  4. VISTARIL [Suspect]
     Active Substance: HYDROXYZINE PAMOATE
     Indication: ANXIETY
     Dosage: 50 MG, UNK
  5. TRAZODONE [Concomitant]
     Active Substance: TRAZODONE HYDROCHLORIDE
     Dosage: 150 MG, 1X/DAY (AT BED TIME)
  6. BUSPIRONE [Concomitant]
     Active Substance: BUSPIRONE HYDROCHLORIDE
     Dosage: 10 MG, (2 IN MORNING AND 2 AT NIGHT)

REACTIONS (2)
  - Mental disorder [Unknown]
  - Malaise [Unknown]
